FAERS Safety Report 13443712 (Version 1)
Quarter: 2017Q2

REPORT INFORMATION
  Report Type: Spontaneous
  Country: JP (occurrence: JP)
  Receive Date: 20170414
  Receipt Date: 20170414
  Transmission Date: 20170830
  Serious: Yes (Other)
  Sender: FDA-Public Use
  Company Number: JP-CIPLA LTD.-2012JP00600

PATIENT

DRUGS (2)
  1. IRINOTECAN [Suspect]
     Active Substance: IRINOTECAN
     Indication: SMALL CELL LUNG CANCER
     Dosage: 50 MG/M2, DISSOLVED IN 500 ML OF NORMAL SALINE FOR ADMINISTRATION AS A 90-MIN INTRAVENOUS INFUSION
     Route: 042
  2. CARBOPLATIN. [Suspect]
     Active Substance: CARBOPLATIN
     Indication: SMALL CELL LUNG CANCER
     Dosage: AUC=2, DISSOLVED IN 250 ML OF NORMAL SALINE OR 5% GLUCOSE SOLUTION FOR ADMINISTRATION ON DAY 1 AND 8
     Route: 042

REACTIONS (1)
  - Peripheral motor neuropathy [Unknown]
